FAERS Safety Report 9147764 (Version 3)
Quarter: 2013Q2

REPORT INFORMATION
  Report Type: Report from Study
  Country: DE (occurrence: DE)
  Receive Date: 20130307
  Receipt Date: 20130613
  Transmission Date: 20140414
  Serious: Yes (Hospitalization)
  Sender: FDA-Public Use
  Company Number: DE-VERTEX PHARMACEUTICALS INC.-2013-003137

PATIENT
  Age: 55 Year
  Sex: Female
  Weight: 69 kg

DRUGS (5)
  1. VX-950 (TELAPREVIR) [Suspect]
     Indication: HEPATITIS C
     Dosage: 2250 MG, QD
     Route: 048
     Dates: start: 20120522, end: 20120814
  2. PEGINTERFERON ALFA [Suspect]
     Indication: HEPATITIS C
     Dosage: DOSAGE FORM: UNSPECIFIED
     Route: 058
     Dates: start: 20120522, end: 20121113
  3. RIBAVIRIN [Suspect]
     Indication: HEPATITIS C
     Dosage: DOSAGE FORM: UNSPECIFIED
     Route: 048
     Dates: start: 20120522, end: 20121118
  4. SUBUTEX [Concomitant]
     Indication: POLYSUBSTANCE DEPENDENCE
     Dosage: DOSAGE FORM: UNSPECIFIED, ^REPLACEMENT THERAPY^
     Route: 048
  5. L-THYROXIN [Concomitant]
     Indication: HYPOTHYROIDISM
     Dosage: DOSAGE FORM: UNSPECIFIED, ^REPLACEMENT THERAPY^
     Route: 048

REACTIONS (5)
  - Epistaxis [Recovered/Resolved]
  - Asthenia [Unknown]
  - Mucosal dryness [Unknown]
  - Skin disorder [Unknown]
  - Anaemia [Unknown]
